FAERS Safety Report 15963101 (Version 3)
Quarter: 2019Q4

REPORT INFORMATION
  Report Type: Report from Study
  Country: JP (occurrence: JP)
  Receive Date: 20190214
  Receipt Date: 20191021
  Transmission Date: 20200122
  Serious: Yes (Death, Other)
  Sender: FDA-Public Use
  Company Number: JP-009507513-1901JPN002182J

PATIENT
  Age: 56 Year
  Sex: Female
  Weight: 48 kg

DRUGS (7)
  1. ARBEKACIN SULFATE [Concomitant]
     Active Substance: ARBEKACIN SULFATE
     Indication: FEBRILE NEUTROPENIA
     Dosage: 100 MILLIGRAM, QD
     Route: 041
     Dates: start: 20180219, end: 20190119
  2. FENTANYL. [Concomitant]
     Active Substance: FENTANYL
     Dosage: 0.2 MILLIGRAM, QD
     Route: 065
     Dates: end: 20190117
  3. PROGRAF [Concomitant]
     Active Substance: TACROLIMUS
     Indication: PROPHYLAXIS
     Dosage: 0.55 MILLIGRAM, QD
     Route: 041
     Dates: start: 20181127, end: 20190119
  4. PREVYMIS [Suspect]
     Active Substance: LETERMOVIR
     Indication: ANTIVIRAL PROPHYLAXIS
     Dosage: 480 MILLIGRAM, QD
     Route: 048
     Dates: start: 20190110, end: 20190119
  5. ACICLOVIR [Concomitant]
     Active Substance: ACYCLOVIR
     Indication: PROPHYLAXIS
     Dosage: 250 MILLIGRAM, QD
     Route: 041
     Dates: start: 20181130, end: 20190119
  6. MOBENZOCIN [Concomitant]
     Active Substance: CEFTAZIDIME
     Indication: FEBRILE NEUTROPENIA
     Dosage: 1 GRAM, BID
     Route: 041
     Dates: start: 20180219, end: 20190119
  7. MYSER [Concomitant]
     Dosage: PRN
     Route: 065
     Dates: end: 20190119

REACTIONS (4)
  - Cardiac failure acute [Fatal]
  - Incorrect dose administered [Unknown]
  - Engraft failure [Unknown]
  - Off label use [Unknown]

NARRATIVE: CASE EVENT DATE: 2019
